FAERS Safety Report 8616892-6 (Version None)
Quarter: 2012Q3

REPORT INFORMATION
  Report Type: 
  Country: None (occurrence: None)
  Receive Date: 20120823
  Receipt Date: 20120809
  Transmission Date: 20120928
  Serious: Yes (Other)
  Sender: FDA-Public Use
  Company Number: US-009507513-1207USA011121

PATIENT

DRUGS (2)
  1. ZOCOR [Suspect]
     Dosage: UNK
  2. NORFLOXACIN [Suspect]

REACTIONS (1)
  - NO ADVERSE EVENT [None]
